FAERS Safety Report 10284934 (Version 3)
Quarter: 2014Q4

REPORT INFORMATION
  Report Type: Spontaneous
  Country: US (occurrence: US)
  Receive Date: 20140708
  Receipt Date: 20141013
  Transmission Date: 20150528
  Serious: Yes (Death, Hospitalization, Other)
  Sender: FDA-Public Use
  Company Number: US-GLAXOSMITHKLINE-A1079697A

PATIENT
  Age: 58 Year
  Sex: Male

DRUGS (3)
  1. PROMACTA [Suspect]
     Active Substance: ELTROMBOPAG OLAMINE
     Indication: RENAL CANCER
  2. PROMACTA [Suspect]
     Active Substance: ELTROMBOPAG OLAMINE
     Indication: VENOUS THROMBOSIS
     Dosage: 25 MG, QD
     Route: 048
     Dates: start: 20140228, end: 20140805
  3. PROMACTA [Suspect]
     Active Substance: ELTROMBOPAG OLAMINE
     Indication: HEPATITIS C

REACTIONS (2)
  - Death [Fatal]
  - Cholecystectomy [Unknown]

NARRATIVE: CASE EVENT DATE: 20140805
